FAERS Safety Report 13886759 (Version 1)
Quarter: 2017Q3

REPORT INFORMATION
  Report Type: Spontaneous
  Country: US (occurrence: US)
  Receive Date: 20170821
  Receipt Date: 20170821
  Transmission Date: 20171127
  Serious: No
  Sender: FDA-Public Use
  Company Number: US-ROCHE-1137643

PATIENT
  Sex: Female

DRUGS (3)
  1. ACTEMRA [Suspect]
     Active Substance: TOCILIZUMAB
     Indication: RHEUMATOID ARTHRITIS
     Route: 042
     Dates: start: 20120715
  2. ACTEMRA [Suspect]
     Active Substance: TOCILIZUMAB
     Route: 065
     Dates: start: 20120804
  3. ACTEMRA [Suspect]
     Active Substance: TOCILIZUMAB
     Route: 065
     Dates: start: 20120904

REACTIONS (8)
  - Pain in extremity [Unknown]
  - Stress [Unknown]
  - Pruritus generalised [Unknown]
  - C-reactive protein increased [Unknown]
  - Depression [Unknown]
  - Joint lock [Unknown]
  - Peripheral swelling [Unknown]
  - Alopecia [Unknown]
